FAERS Safety Report 15479995 (Version 1)
Quarter: 2018Q4

REPORT INFORMATION
  Report Type: Spontaneous
  Country: TW (occurrence: TW)
  Receive Date: 20181009
  Receipt Date: 20181009
  Transmission Date: 20190205
  Serious: Yes (Other)
  Sender: FDA-Public Use
  Company Number: TW-009507513-1810TWN002211

PATIENT
  Age: 86 Year
  Sex: Male
  Weight: 51 kg

DRUGS (3)
  1. AFATINIB [Concomitant]
     Active Substance: AFATINIB
     Dosage: 30 MG, QD
     Route: 048
     Dates: start: 20180415, end: 20180516
  2. KEYTRUDA [Suspect]
     Active Substance: PEMBROLIZUMAB
     Indication: HYPOPHARYNGEAL CANCER
     Dosage: 200 MG, UNK
     Dates: start: 20171225
  3. AFATINIB [Concomitant]
     Active Substance: AFATINIB
     Indication: NEOPLASM MALIGNANT
     Dosage: 40 MG, QD
     Route: 048
     Dates: start: 20171225, end: 20180103

REACTIONS (18)
  - Pneumonia [Unknown]
  - Neutropenia [Unknown]
  - Pyrexia [Recovered/Resolved]
  - Pneumonia [Unknown]
  - Respiratory failure [Unknown]
  - Renal failure [Unknown]
  - Product use in unapproved indication [Unknown]
  - Interstitial lung disease [Unknown]
  - Hyperbilirubinaemia [Unknown]
  - Alanine aminotransferase increased [Unknown]
  - Aspartate aminotransferase increased [Unknown]
  - Septic shock [Unknown]
  - Chills [Recovered/Resolved]
  - Aspartate aminotransferase increased [Unknown]
  - Alanine aminotransferase increased [Unknown]
  - Pathogen resistance [Unknown]
  - Blood bilirubin abnormal [Unknown]
  - Tongue disorder [Recovering/Resolving]

NARRATIVE: CASE EVENT DATE: 20171225
